FAERS Safety Report 4988234-9 (Version None)
Quarter: 2006Q2

REPORT INFORMATION
  Report Type: 
  Country: None (occurrence: None)
  Receive Date: 20060501
  Receipt Date: 20051215
  Transmission Date: 20061013
  Serious: Yes (Death, Other)
  Sender: FDA-Public Use
  Company Number: US-MERCK-0512USA02460

PATIENT
  Age: 65 Year
  Sex: Female
  Weight: 59 kg

DRUGS (1)
  1. VIOXX [Suspect]
     Indication: MUSCLE SPASMS
     Route: 048
     Dates: start: 20030922, end: 20031211

REACTIONS (21)
  - ACIDOSIS [None]
  - ADRENAL HAEMORRHAGE [None]
  - AORTIC ANEURYSM [None]
  - CARDIOPULMONARY FAILURE [None]
  - CYANOSIS [None]
  - DISSEMINATED INTRAVASCULAR COAGULATION [None]
  - HEPATIC CIRRHOSIS [None]
  - HYPOTENSION [None]
  - MITRAL VALVE CALCIFICATION [None]
  - MYOCARDIAL INFARCTION [None]
  - NEPHROSCLEROSIS [None]
  - PERICARDITIS INFECTIVE [None]
  - PETECHIAE [None]
  - PNEUMONIA [None]
  - PULMONARY CONGESTION [None]
  - PULMONARY GRANULOMA [None]
  - PULMONARY OEDEMA [None]
  - PULSE ABSENT [None]
  - PYREXIA [None]
  - SEPSIS [None]
  - VENTRICULAR HYPERTROPHY [None]
